FAERS Safety Report 4595797-4 (Version None)
Quarter: 2005Q1

REPORT INFORMATION
  Report Type: 
  Country: None (occurrence: None)
  Receive Date: 20050224
  Receipt Date: 20050201
  Transmission Date: 20050727
  Serious: Yes (Hospitalization)
  Sender: FDA-Public Use
  Company Number: EWC041040937

PATIENT
  Age: 76 Year
  Sex: Female

DRUGS (4)
  1. FORTEO [Suspect]
     Indication: OSTEOPOROSIS
     Dosage: 20 UG/1 DAY
     Dates: start: 20040524
  2. VITAMIN D3 [Concomitant]
  3. LORAZEPAM [Concomitant]
  4. DEURSIL (URSODEOXYCHOLIC ACID) [Concomitant]

REACTIONS (4)
  - BLOOD CREATININE INCREASED [None]
  - FALL [None]
  - FEMUR FRACTURE [None]
  - HUMERUS FRACTURE [None]
